FAERS Safety Report 6677614-1 (Version None)
Quarter: 2010Q2

REPORT INFORMATION
  Report Type: 
  Country: None (occurrence: None)
  Receive Date: 20100412
  Receipt Date: 20100309
  Transmission Date: 20101027
  Serious: No
  Sender: FDA-Public Use
  Company Number: CA-ALEXION-A201000268

PATIENT
  Sex: Female

DRUGS (3)
  1. SOLIRIS [Suspect]
     Indication: PAROXYSMAL NOCTURNAL HAEMOGLOBINURIA
     Dosage: 600 MG, UNK
     Route: 042
     Dates: start: 20100308
  2. PREDNISONE TAB [Concomitant]
     Dosage: UNK
     Route: 048
     Dates: end: 20100101
  3. BIRTH CONTROL MEDICATION [Concomitant]
     Dosage: UNK
     Route: 048

REACTIONS (4)
  - HEADACHE [None]
  - NASAL CONGESTION [None]
  - NAUSEA [None]
  - VOMITING [None]
